FAERS Safety Report 12154836 (Version 1)
Quarter: 2016Q1

REPORT INFORMATION
  Report Type: Other
  Country: KR (occurrence: KR)
  Receive Date: 20160307
  Receipt Date: 20160307
  Transmission Date: 20160526
  Serious: Yes (Other)
  Sender: FDA-Public Use
  Company Number: CONCORDIA PHARMACEUTICALS INC.-CO-OR-KR-2016-007

PATIENT
  Age: 40 Year
  Sex: Male

DRUGS (3)
  1. CYCLOSPORINE A [Suspect]
     Active Substance: CYCLOSPORINE
     Indication: AUTOIMMUNE RETINOPATHY
     Route: 048
  2. AZATHIOPRINE. [Suspect]
     Active Substance: AZATHIOPRINE
     Indication: AUTOIMMUNE RETINOPATHY
     Route: 048
  3. PREDNISOLONE. [Suspect]
     Active Substance: PREDNISOLONE
     Indication: AUTOIMMUNE RETINOPATHY
     Route: 048

REACTIONS (1)
  - Disease progression [Unknown]
